FAERS Safety Report 20547124 (Version 1)
Quarter: 2022Q1

REPORT INFORMATION
  Report Type: Spontaneous
  Country: DK (occurrence: DK)
  Receive Date: 20220303
  Receipt Date: 20220303
  Transmission Date: 20220423
  Serious: Yes (Hospitalization, Other)
  Sender: FDA-Public Use
  Company Number: DK-ROCHE-3022357

PATIENT
  Age: 61 Year
  Sex: Male

DRUGS (7)
  1. RITUXIMAB [Suspect]
     Active Substance: RITUXIMAB
     Indication: Chronic lymphocytic leukaemia
     Dosage: 2 COURSES
     Route: 065
  2. FLUDARABINE [Suspect]
     Active Substance: FLUDARABINE PHOSPHATE
     Indication: Chronic lymphocytic leukaemia
     Dosage: 2 COURSES
     Route: 065
  3. CYCLOPHOSPHAMIDE [Suspect]
     Active Substance: CYCLOPHOSPHAMIDE
     Indication: Chronic lymphocytic leukaemia
     Dosage: 2 COURSES
     Route: 065
  4. IMMUNE GLOBULIN NOS [Suspect]
     Active Substance: IMMUNE GLOBULIN NOS
     Dosage: 2 COURSES
     Route: 042
  5. IBRUTINIB [Concomitant]
     Active Substance: IBRUTINIB
     Dosage: TREATMENT FOR 6MONTHS
  6. VENETOCLAX [Concomitant]
     Active Substance: VENETOCLAX
     Dosage: UNK
  7. ITRACONAZOLE [Concomitant]
     Active Substance: ITRACONAZOLE
     Dosage: 200 MG,X 0.5 DAY ON DAY 30

REACTIONS (3)
  - COVID-19 pneumonia [Recovered/Resolved]
  - Pyrexia [Unknown]
  - Malaise [Unknown]
